FAERS Safety Report 10261270 (Version 4)
Quarter: 2014Q3

REPORT INFORMATION
  Report Type: Report from Study
  Country: CA (occurrence: CA)
  Receive Date: 20140626
  Receipt Date: 20140721
  Transmission Date: 20150326
  Serious: Yes (Hospitalization)
  Sender: FDA-Public Use
  Company Number: CA-JNJFOC-20140608313

PATIENT
  Age: 55 Year
  Sex: Male
  Weight: 152 kg

DRUGS (1)
  1. STELARA [Suspect]
     Active Substance: USTEKINUMAB
     Indication: PSORIASIS
     Route: 058
     Dates: start: 200905

REACTIONS (1)
  - Staphylococcal infection [Recovered/Resolved with Sequelae]

NARRATIVE: CASE EVENT DATE: 20140515
